FAERS Safety Report 25709870 (Version 1)
Quarter: 2025Q3

REPORT INFORMATION
  Report Type: Spontaneous
  Country: RU (occurrence: RU)
  Receive Date: 20250821
  Receipt Date: 20250821
  Transmission Date: 20251021
  Serious: Yes (Hospitalization, Other)
  Sender: GILEAD
  Company Number: RU-GILEAD-2025-0724797

PATIENT
  Age: 65 Year
  Sex: Female

DRUGS (1)
  1. EPCLUSA [Suspect]
     Active Substance: SOFOSBUVIR\VELPATASVIR
     Indication: Chronic hepatitis C
     Route: 065
     Dates: start: 20250711

REACTIONS (5)
  - Pneumonia [Not Recovered/Not Resolved]
  - Seizure [Not Recovered/Not Resolved]
  - Immunodeficiency [Unknown]
  - Aspiration [Unknown]
  - Respiratory failure [Unknown]

NARRATIVE: CASE EVENT DATE: 20250811
